FAERS Safety Report 9681543 (Version 2)
Quarter: 2013Q4

REPORT INFORMATION
  Report Type: Spontaneous
  Country: US (occurrence: US)
  Receive Date: 20131111
  Receipt Date: 20131118
  Transmission Date: 20140711
  Serious: No
  Sender: FDA-Public Use
  Company Number: US-009507513-1310USA010596

PATIENT
  Age: 27 Year
  Sex: Male

DRUGS (5)
  1. ISENTRESS [Suspect]
     Indication: HIV INFECTION
     Dosage: 400 MG, TWICE DAILY
     Route: 048
     Dates: start: 201105, end: 20131017
  2. LORTAB [Concomitant]
     Dosage: 5MG/500MG, AS NEEDED
  3. NEURONTIN [Concomitant]
     Dosage: 300 MG, THREE TIMES DAILY
  4. LIDODERM [Concomitant]
     Dosage: 5 %, AS NEEDED DAILY
  5. TRUVADA [Concomitant]
     Dosage: 200MG/300MG/ONCE DAILY

REACTIONS (1)
  - Pathogen resistance [Recovering/Resolving]
